FAERS Safety Report 8071987-3 (Version None)
Quarter: 2012Q1

REPORT INFORMATION
  Report Type: 
  Country: None (occurrence: None)
  Receive Date: 20120124
  Receipt Date: 20120124
  Transmission Date: 20120608
  Serious: Yes (Life-Threatening, Hospitalization, Other)
  Sender: FDA-Public Use
  Company Number: None

PATIENT
  Sex: Female
  Weight: 77.1115 kg

DRUGS (2)
  1. PROTONIX [Suspect]
     Indication: ULCER
     Dosage: 40MG 1 A DAY BY MOUTH
     Route: 048
     Dates: start: 20111220, end: 20111226
  2. PROTONIX [Suspect]
     Indication: GASTROOESOPHAGEAL REFLUX DISEASE
     Dosage: 40MG 1 A DAY BY MOUTH
     Route: 048
     Dates: start: 20111220, end: 20111226

REACTIONS (3)
  - DRUG WITHDRAWAL SYNDROME [None]
  - MALABSORPTION [None]
  - PAIN IN EXTREMITY [None]
